FAERS Safety Report 4978956-8 (Version None)
Quarter: 2006Q2

REPORT INFORMATION
  Report Type: 
  Country: None (occurrence: None)
  Receive Date: 20060417
  Receipt Date: 20060403
  Transmission Date: 20061013
  Serious: Yes (Death)
  Sender: FDA-Public Use
  Company Number: 2006047375

PATIENT

DRUGS (2)
  1. ZYVOX [Suspect]
     Indication: ENDOCARDITIS ENTEROCOCCAL
  2. AMOXICILLIN [Suspect]
     Indication: ENDOCARDITIS ENTEROCOCCAL

REACTIONS (1)
  - THROMBOCYTOPENIA [None]
